FAERS Safety Report 19307112 (Version 1)
Quarter: 2021Q2

REPORT INFORMATION
  Report Type: Spontaneous
  Country: US (occurrence: US)
  Receive Date: 20210526
  Receipt Date: 20210526
  Transmission Date: 20210717
  Serious: No
  Sender: FDA-Public Use
  Company Number: US-PFIZER INC-2021224082

PATIENT
  Age: 57 Year
  Sex: Female
  Weight: 97.52 kg

DRUGS (6)
  1. IPRATROPIUM [Concomitant]
     Active Substance: IPRATROPIUM
     Indication: DYSPNOEA
     Dosage: UNK, 3X/DAY (.03%; TWO SPRAYS EACH NOSTRIL UP TO THREE TIMES DAILY )
     Route: 045
     Dates: start: 20210222
  2. ROBAXIN [Concomitant]
     Active Substance: METHOCARBAMOL
     Indication: MUSCLE RELAXANT THERAPY
     Dosage: 500 MG, AS NEEDED
     Route: 048
  3. ALLEGRA?D [FEXOFENADINE;PSEUDOEPHEDRINE HYDROCHLORIDE] [Concomitant]
     Indication: DYSPNOEA
     Dosage: 1 DF, AS NEEDED (60MG/120MG; TAKE ONE DAILY AS NEEDED BY MOUTH)
     Route: 048
  4. DESVENLAFAXINE SUCCINATE MONOHYDRATE [Suspect]
     Active Substance: DESVENLAFAXINE SUCCINATE
     Indication: DEPRESSION
     Dosage: 25 MG, 1X/DAY
     Route: 048
     Dates: start: 20210226
  5. ALBUTEROL [SALBUTAMOL] [Concomitant]
     Active Substance: ALBUTEROL
     Indication: DYSPNOEA
     Dosage: 90 MG, AS NEEDED (90MG; TWO INHALATION EVERY SIX HOURS OR AS NEEDED)
     Route: 045
  6. PROBIOTIN [Concomitant]
     Dosage: 1 DF, 2X/DAY
     Route: 048

REACTIONS (8)
  - Flushing [Not Recovered/Not Resolved]
  - Hot flush [Unknown]
  - Feeling cold [Unknown]
  - Anxiety [Unknown]
  - Feeling jittery [Unknown]
  - Disease recurrence [Unknown]
  - Nausea [Unknown]
  - Insomnia [Not Recovered/Not Resolved]

NARRATIVE: CASE EVENT DATE: 20210227
